FAERS Safety Report 6165969-6 (Version None)
Quarter: 2009Q2

REPORT INFORMATION
  Report Type: 
  Country: None (occurrence: None)
  Receive Date: 20090422
  Receipt Date: 20090414
  Transmission Date: 20091009
  Serious: Yes (Hospitalization)
  Sender: FDA-Public Use
  Company Number: SPV1-2009-00707

PATIENT
  Age: 70 Year
  Sex: Male
  Weight: 124.7 kg

DRUGS (12)
  1. FOSRENOL [Suspect]
     Indication: DIALYSIS
     Dosage: 3X/DAY; TID, ORAL
     Route: 048
     Dates: start: 20071001
  2. ASPIRIN [Concomitant]
  3. FLOMAX [Concomitant]
  4. LORINASE (LORATADINE) [Concomitant]
  5. GABAPENTINE (GABAPENTIN) [Concomitant]
  6. PLAVIX [Concomitant]
  7. MIDODRINE HYDROCHLORIDE [Concomitant]
  8. SYNTHROID [Concomitant]
  9. NOVOLIN R [Concomitant]
  10. NOVOLIN N [Concomitant]
  11. LOPRESSOR [Concomitant]
  12. MORNIFLUMATE [Concomitant]

REACTIONS (8)
  - ANKLE FRACTURE [None]
  - DEHYDRATION [None]
  - FALL [None]
  - FOOT AMPUTATION [None]
  - LEG AMPUTATION [None]
  - PERIPHERAL ISCHAEMIA [None]
  - POST PROCEDURAL HAEMORRHAGE [None]
  - TRAUMATIC FRACTURE [None]
